FAERS Safety Report 19205805 (Version 1)
Quarter: 2021Q2

REPORT INFORMATION
  Report Type: Spontaneous
  Country: US (occurrence: US)
  Receive Date: 20210503
  Receipt Date: 20210503
  Transmission Date: 20210717
  Serious: Yes (Hospitalization)
  Sender: FDA-Public Use
  Company Number: None

PATIENT
  Age: 58 Year
  Sex: Male
  Weight: 105.3 kg

DRUGS (4)
  1. VITAMIN D [Concomitant]
     Active Substance: VITAMIN D NOS
  2. CYMBALTA [Concomitant]
     Active Substance: DULOXETINE HYDROCHLORIDE
  3. GABAPENTIN. [Concomitant]
     Active Substance: GABAPENTIN
  4. ANTISPETIC (EUCALYPTOL\MENTHOL\METHYL SALICYLATE\THYMOL) [Suspect]
     Active Substance: EUCALYPTOL\MENTHOL\METHYL SALICYLATE\THYMOL
     Indication: DENTAL DISORDER PROPHYLAXIS
     Dosage: ?          QUANTITY:3 TEASPOON(S);?
     Route: 048
     Dates: start: 20210501, end: 20210501

REACTIONS (2)
  - Stomatitis [None]
  - Mouth haemorrhage [None]

NARRATIVE: CASE EVENT DATE: 20210501
